FAERS Safety Report 23516732 (Version 1)
Quarter: 2024Q1

REPORT INFORMATION
  Report Type: Spontaneous
  Country: CN (occurrence: CN)
  Receive Date: 20240213
  Receipt Date: 20240213
  Transmission Date: 20240409
  Serious: Yes (Life-Threatening)
  Sender: FDA-Public Use
  Company Number: CN-ROCHE-3508503

PATIENT
  Age: 54 Year
  Sex: Female
  Weight: 55 kg

DRUGS (5)
  1. XELODA [Suspect]
     Active Substance: CAPECITABINE
     Indication: Product used for unknown indication
     Dosage: BID,D1-D14; APPROVAL NO. GYZZ H20073024
     Route: 048
     Dates: start: 20231130, end: 20231221
  2. XELODA [Suspect]
     Active Substance: CAPECITABINE
     Dosage: BID,D1-D14 Q3W
     Route: 048
     Dates: start: 20220507
  3. XELODA [Suspect]
     Active Substance: CAPECITABINE
     Dosage: 1.5 1/MORNING AND 1.0 1/NIGHT D1-14
     Route: 048
  4. TRASTUZUMAB [Suspect]
     Active Substance: TRASTUZUMAB
     Indication: Product used for unknown indication
     Dosage: INTRAVENOUS INFUSION, D1
     Route: 041
     Dates: start: 20231130
  5. PYROTINIB [Concomitant]
     Active Substance: PYROTINIB

REACTIONS (1)
  - Palmar-plantar erythrodysaesthesia syndrome [Recovering/Resolving]

NARRATIVE: CASE EVENT DATE: 20231221
